FAERS Safety Report 9026519 (Version 1)
Quarter: 2012Q4

REPORT INFORMATION
  Report Type: Spontaneous
  Country: US (occurrence: None)
  Receive Date: 20121217
  Receipt Date: 20121217
  Transmission Date: 20130627
  Serious: Yes (Disabling)
  Sender: FDA-Public Use
  Company Number: None

PATIENT
  Age: 85 Year
  Sex: Female

DRUGS (1)
  1. PROLEA [Suspect]
     Indication: BONE DISORDER
     Dosage: 1 shot     shot

REACTIONS (2)
  - Myalgia [None]
  - Pain [None]
